FAERS Safety Report 4918187-0 (Version None)
Quarter: 2006Q1

REPORT INFORMATION
  Report Type: 
  Country: None (occurrence: None)
  Receive Date: 20060215
  Receipt Date: 20060131
  Transmission Date: 20060701
  Serious: Yes (Death)
  Sender: FDA-Public Use
  Company Number: MEDI-0004089

PATIENT
  Age: 4 Month
  Sex: Male
  Weight: 2.4 kg

DRUGS (2)
  1. SYNAGIS [Suspect]
     Indication: ANTIVIRAL PROPHYLAXIS
     Dosage: 1 IN 30 D, INTRAMUSCULAR
     Route: 030
     Dates: start: 20060118, end: 20060118
  2. DIPHTHERIA, PERTUSSIS, TETANUS, POLIOMYELITIS (DIPHTHERIA, PERTUSSIS, [Suspect]
     Indication: PROPHYLAXIS
     Dates: start: 20050117, end: 20050117

REACTIONS (1)
  - DEATH [None]
